FAERS Safety Report 8347175-X (Version None)
Quarter: 2012Q2

REPORT INFORMATION
  Report Type: 
  Country: None (occurrence: None)
  Receive Date: 20120509
  Receipt Date: 20120508
  Transmission Date: 20120825
  Serious: Yes (Hospitalization)
  Sender: FDA-Public Use
  Company Number: FI-ROCHE-1066702

PATIENT
  Sex: Male

DRUGS (2)
  1. XELODA [Suspect]
     Dosage: 4TH TREATMENT CYCLE
     Dates: start: 20120402
  2. XELODA [Suspect]
     Indication: GASTROINTESTINAL CARCINOMA
     Dosage: DOSE OF 2+3
     Dates: start: 20120130

REACTIONS (1)
  - EPILEPSY [None]
